FAERS Safety Report 5186646-4 (Version None)
Quarter: 2006Q4

REPORT INFORMATION
  Report Type: 
  Country: None (occurrence: None)
  Receive Date: 20061213
  Receipt Date: 20061201
  Transmission Date: 20070319
  Serious: Yes (Other)
  Sender: FDA-Public Use
  Company Number: 2006-151333-NL

PATIENT
  Sex: Female

DRUGS (1)
  1. PUREGON [Suspect]

REACTIONS (1)
  - ANAPHYLACTIC REACTION [None]
